FAERS Safety Report 7647781-1 (Version None)
Quarter: 2011Q3

REPORT INFORMATION
  Report Type: 
  Country: None (occurrence: None)
  Receive Date: 20110801
  Receipt Date: 20110726
  Transmission Date: 20111222
  Serious: Yes (Life-Threatening)
  Sender: FDA-Public Use
  Company Number: IT-ROCHE-792340

PATIENT
  Sex: Male

DRUGS (5)
  1. SEROQUEL [Concomitant]
     Route: 048
  2. REBETOL [Suspect]
     Indication: HEPATITIS C
     Route: 048
     Dates: start: 20110208, end: 20110621
  3. PEGASYS [Suspect]
     Indication: HEPATITIS C
     Route: 058
     Dates: start: 20101112, end: 20110621
  4. CYMBALTA [Concomitant]
     Route: 048
  5. NEORECORMON [Concomitant]
     Dosage: DOSE: 30,000,000
     Route: 058

REACTIONS (1)
  - HEPATIC NEOPLASM MALIGNANT [None]
